FAERS Safety Report 18123953 (Version 1)
Quarter: 2020Q3

REPORT INFORMATION
  Report Type: Spontaneous
  Country: BR (occurrence: BR)
  Receive Date: 20200807
  Receipt Date: 20200807
  Transmission Date: 20201103
  Serious: Yes (Death, Life-Threatening, Hospitalization)
  Sender: FDA-Public Use
  Company Number: BR-SCIEGEN-2020SCILIT00171

PATIENT
  Age: 83 Year
  Sex: Female

DRUGS (2)
  1. SERTRALINE HYDROCHLORIDE TABLETS [Suspect]
     Active Substance: SERTRALINE HYDROCHLORIDE
     Indication: DEMENTIA ALZHEIMER^S TYPE
     Route: 065
  2. NORTRIPTYLINE [Suspect]
     Active Substance: NORTRIPTYLINE
     Indication: DEMENTIA ALZHEIMER^S TYPE
     Route: 065

REACTIONS (2)
  - Stress cardiomyopathy [Fatal]
  - Cardiogenic shock [Fatal]
